FAERS Safety Report 8788146 (Version 1)
Quarter: 2012Q4

REPORT INFORMATION
  Report Type: 
  Country: IL (occurrence: IL)
  Receive Date: 20120914
  Receipt Date: 20120914
  Transmission Date: 20130627
  Serious: Yes (Hospitalization)
  Sender: FDA-Public Use
  Company Number: IL-ELI_LILLY_AND_COMPANY-IL201209002252

PATIENT
  Age: 84 Year
  Sex: Female
  Weight: 64 kg

DRUGS (8)
  1. FORTEO [Suspect]
     Indication: OSTEOPOROSIS
     Dosage: 20 ug, qd
     Route: 058
     Dates: start: 20120710, end: 20120821
  2. PROCOR [Concomitant]
  3. GLUCOMIN [Concomitant]
  4. LEVEMIR [Concomitant]
  5. VITAMINS [Concomitant]
  6. IRON [Concomitant]
  7. FUSID [Concomitant]
  8. COUMADIN [Concomitant]

REACTIONS (3)
  - Pneumonia [Unknown]
  - Hypotension [Unknown]
  - Pulmonary congestion [Unknown]
